FAERS Safety Report 15944796 (Version 1)
Quarter: 2019Q1

REPORT INFORMATION
  Report Type: Spontaneous
  Country: US (occurrence: US)
  Receive Date: 20190211
  Receipt Date: 20190211
  Transmission Date: 20190417
  Serious: Yes (Disabling)
  Sender: FDA-Public Use
  Company Number: None

PATIENT
  Age: 26 Year
  Sex: Female
  Weight: 78.3 kg

DRUGS (2)
  1. ZOLOFT [Suspect]
     Active Substance: SERTRALINE HYDROCHLORIDE
  2. XANAX [Suspect]
     Active Substance: ALPRAZOLAM
     Indication: PANIC ATTACK
     Dosage: ?          QUANTITY:30 TABLET(S);?
     Route: 048
     Dates: start: 20181005, end: 20181010

REACTIONS (14)
  - Condition aggravated [None]
  - Weight decreased [None]
  - Anxiety [None]
  - Loss of employment [None]
  - Sensory disturbance [None]
  - Panic attack [None]
  - Vomiting [None]
  - Tremor [None]
  - Heart rate increased [None]
  - Withdrawal syndrome [None]
  - Adverse reaction [None]
  - Retching [None]
  - Diarrhoea [None]
  - Eating disorder [None]

NARRATIVE: CASE EVENT DATE: 20181010
